FAERS Safety Report 8899897 (Version 2)
Quarter: 2012Q4

REPORT INFORMATION
  Report Type: Report from Study
  Country: IT (occurrence: IT)
  Receive Date: 20121109
  Receipt Date: 20121127
  Transmission Date: 20130627
  Serious: Yes (Hospitalization)
  Sender: FDA-Public Use
  Company Number: IT-ROCHE-1153857

PATIENT
  Age: 73 Year
  Sex: Male

DRUGS (4)
  1. BEVACIZUMAB [Suspect]
     Indication: COLON CANCER
     Route: 042
     Dates: start: 20120731, end: 20121023
  2. IRINOTECAN [Concomitant]
     Indication: COLON CANCER
     Route: 042
     Dates: start: 20120724, end: 20121023
  3. CALCIUM LEVOFOLINATE [Concomitant]
     Indication: COLON CANCER
     Route: 042
     Dates: start: 20120724, end: 20121023
  4. FLUOROURACIL [Concomitant]
     Indication: COLON CANCER
     Dosage: on day 1,8,15,22 of every 6 weeks
     Route: 042
     Dates: start: 20120724, end: 20121023

REACTIONS (3)
  - Cardiac failure [Recovered/Resolved]
  - Dyspnoea [Recovered/Resolved]
  - Oedema [Recovered/Resolved]
